FAERS Safety Report 8615236-3 (Version None)
Quarter: 2012Q3

REPORT INFORMATION
  Report Type: 
  Country: None (occurrence: None)
  Receive Date: 20120823
  Receipt Date: 20120820
  Transmission Date: 20120928
  Serious: No
  Sender: FDA-Public Use
  Company Number: US-PFIZER INC-2012204821

PATIENT
  Age: 69 Year
  Sex: Male

DRUGS (1)
  1. INLYTA [Suspect]
     Indication: RENAL NEOPLASM
     Dosage: 5 MG, ONE TABLET, 2X/DAY
     Dates: start: 20120808

REACTIONS (5)
  - DEHYDRATION [None]
  - ORAL PAIN [None]
  - DIARRHOEA [None]
  - FATIGUE [None]
  - DECREASED APPETITE [None]
